FAERS Safety Report 4453014-X (Version None)
Quarter: 2004Q3

REPORT INFORMATION
  Report Type: 
  Country: None (occurrence: None)
  Receive Date: 20040916
  Receipt Date: 20040830
  Transmission Date: 20050211
  Serious: Yes (Hospitalization, Other)
  Sender: FDA-Public Use
  Company Number: PHEH2004US08674

PATIENT
  Age: 64 Year
  Sex: Female

DRUGS (2)
  1. VISUDYNE [Suspect]
     Indication: MACULAR DEGENERATION
     Dosage: 2 MG/ML ONCE IV
     Route: 042
     Dates: start: 20040621, end: 20040621
  2. LEVOTHYROXINE SODIUM [Concomitant]

REACTIONS (8)
  - ABDOMINAL DISTENSION [None]
  - BACK PAIN [None]
  - DEHYDRATION [None]
  - DEPRESSION [None]
  - HYPERCHLORHYDRIA [None]
  - MULTIPLE MYELOMA [None]
  - NAUSEA [None]
  - PAIN [None]
